FAERS Safety Report 6821253-6 (Version None)
Quarter: 2010Q3

REPORT INFORMATION
  Report Type: 
  Country: None (occurrence: None)
  Receive Date: 20100707
  Receipt Date: 20080422
  Transmission Date: 20110219
  Serious: Yes (Other)
  Sender: FDA-Public Use
  Company Number: US-PFIZER INC-2008021584

PATIENT
  Age: 10 Year
  Sex: Female

DRUGS (1)
  1. ZOLOFT [Suspect]
     Indication: ABNORMAL BEHAVIOUR

REACTIONS (2)
  - HALLUCINATION, AUDITORY [None]
  - INTENTIONAL SELF-INJURY [None]
